FAERS Safety Report 25041169 (Version 1)
Quarter: 2025Q1

REPORT INFORMATION
  Report Type: Spontaneous
  Country: US (occurrence: US)
  Receive Date: 20250305
  Receipt Date: 20250305
  Transmission Date: 20250408
  Serious: Yes (Hospitalization, Other)
  Sender: RANBAXY
  Company Number: US-SUN PHARMACEUTICAL INDUSTRIES LTD-2025R1-497167

PATIENT
  Age: 4 Decade
  Sex: Female

DRUGS (7)
  1. LABETALOL [Suspect]
     Active Substance: LABETALOL
     Indication: Essential hypertension
     Dosage: 100 MILLIGRAM, BID
     Route: 065
  2. LABETALOL [Suspect]
     Active Substance: LABETALOL
     Dosage: 400 MILLIGRAM, BID
     Route: 065
  3. NIFEDIPINE [Suspect]
     Active Substance: NIFEDIPINE
     Indication: Hypertension
     Route: 065
  4. EPLERENONE [Suspect]
     Active Substance: EPLERENONE
     Indication: Hypokalaemia
     Dosage: 25 MILLIGRAM, BID
     Route: 065
  5. EPLERENONE [Suspect]
     Active Substance: EPLERENONE
     Dosage: 50 MILLIGRAM, BID
     Route: 065
  6. POTASSIUM CHLORIDE [Suspect]
     Active Substance: POTASSIUM CHLORIDE
     Indication: Hypokalaemia
     Dosage: 40 MILLIEQUIVALENT, TID
     Route: 048
  7. POTASSIUM CHLORIDE [Suspect]
     Active Substance: POTASSIUM CHLORIDE
     Dosage: 40 MILLIEQUIVALENT, QID
     Route: 048

REACTIONS (9)
  - Exposure during pregnancy [Unknown]
  - Treatment noncompliance [Unknown]
  - Oligohydramnios [Unknown]
  - Hyperaldosteronism [Unknown]
  - Headache [Unknown]
  - Vision blurred [Unknown]
  - Palpitations [Unknown]
  - Hypokalaemic syndrome [Unknown]
  - Adrenal adenoma [Unknown]
